FAERS Safety Report 16234585 (Version 1)
Quarter: 2019Q2

REPORT INFORMATION
  Report Type: Report from Study
  Country: ES (occurrence: ES)
  Receive Date: 20190424
  Receipt Date: 20190424
  Transmission Date: 20190711
  Serious: Yes (Hospitalization)
  Sender: FDA-Public Use
  Company Number: ES-MYLANLABS-2019M1037124

PATIENT
  Age: 32 Year
  Sex: Female

DRUGS (6)
  1. NAPROXENO                          /00256201/ [Interacting]
     Active Substance: NAPROXEN
     Indication: ARTHRALGIA
     Dosage: 1 GRAM, QD
     Route: 048
     Dates: start: 20180214, end: 20180217
  2. CETIRIZINA                         /00884301/ [Concomitant]
     Active Substance: CETIRIZINE HYDROCHLORIDE
     Dosage: 10 MILLIGRAM, QD
     Route: 048
     Dates: start: 20171222, end: 20180217
  3. LORNOXICAM [Interacting]
     Active Substance: LORNOXICAM
     Indication: ARTHRALGIA
     Dosage: 16 MILLIGRAM
     Route: 048
     Dates: start: 20180216, end: 20180217
  4. HIDROCORTISONA                     /00028601/ [Concomitant]
     Active Substance: HYDROCORTISONE
     Dosage: 30 MILLIGRAM, QD
     Route: 048
     Dates: start: 20171124
  5. FLUOXETINE [Suspect]
     Active Substance: FLUOXETINE HYDROCHLORIDE
     Indication: PRODUCT USED FOR UNKNOWN INDICATION
     Dosage: 20 MILLIGRAM, QD
     Route: 048
     Dates: start: 20120607, end: 20180217
  6. LEVOTIROXINA SODICA [Concomitant]
     Active Substance: LEVOTHYROXINE SODIUM
     Dosage: 150 MICROGRAM, QD
     Route: 048
     Dates: start: 20111128

REACTIONS (2)
  - Acute kidney injury [Recovered/Resolved]
  - Drug interaction [Unknown]

NARRATIVE: CASE EVENT DATE: 20180217
